FAERS Safety Report 4990438-6 (Version None)
Quarter: 2006Q2

REPORT INFORMATION
  Report Type: 
  Country: None (occurrence: None)
  Receive Date: 20060427
  Receipt Date: 20060417
  Transmission Date: 20061013
  Serious: Yes (Hospitalization, Other)
  Sender: FDA-Public Use
  Company Number: 2006052075

PATIENT
  Sex: Female
  Weight: 60.3284 kg

DRUGS (13)
  1. NEURONTIN [Suspect]
     Indication: CONVULSION
     Dosage: 3800 MG (3 IN 1 D)
  2. GABAPENTIN [Suspect]
     Indication: CONVULSION
     Dosage: 3800 MG (3 IN 1 D)
     Dates: start: 20050101
  3. LYRICA [Suspect]
     Indication: CONVULSION
  4. GABAPENTIN [Suspect]
     Indication: CONVULSION
  5. GABAPENTIN [Suspect]
     Indication: CONVULSION
  6. INFLUENZA VACCINE (INFLUENZA VACCINE) [Suspect]
     Indication: INFLUENZA IMMUNISATION
  7. PLAQUENIL [Concomitant]
  8. HYDROXYCHLOROQUINE/TRIAMTERENE(HYDROCHLOROTHIAZIDE, TRIAMTERENE) [Concomitant]
  9. PREVACID [Concomitant]
  10. CARBATROL [Concomitant]
  11. MS CONTIN [Concomitant]
  12. ALBUTEROL [Concomitant]
  13. CEPHALEXIN [Concomitant]

REACTIONS (19)
  - CONVULSION [None]
  - DEHYDRATION [None]
  - DIARRHOEA [None]
  - DRUG INEFFECTIVE [None]
  - DRUG WITHDRAWAL SYNDROME [None]
  - HANGOVER [None]
  - INTERVERTEBRAL DISC OPERATION [None]
  - NAUSEA [None]
  - NERVE INJURY [None]
  - OEDEMA PERIPHERAL [None]
  - PAIN [None]
  - PHARMACEUTICAL PRODUCT COMPLAINT [None]
  - RASH [None]
  - RENAL FAILURE ACUTE [None]
  - SYSTEMIC LUPUS ERYTHEMATOSUS [None]
  - THERAPEUTIC RESPONSE UNEXPECTED WITH DRUG SUBSTITUTION [None]
  - TREMOR [None]
  - UNDERDOSE [None]
  - WEIGHT INCREASED [None]
